FAERS Safety Report 6162386-X (Version None)
Quarter: 2009Q2

REPORT INFORMATION
  Report Type: 
  Country: None (occurrence: None)
  Receive Date: 20090421
  Receipt Date: 20090409
  Transmission Date: 20091009
  Serious: Yes (Death, Other)
  Sender: FDA-Public Use
  Company Number: FR-PFIZER INC-2006049378

PATIENT

DRUGS (9)
  1. SILDENAFIL CITRATE [Suspect]
     Indication: PULMONARY HYPERTENSION
     Dosage: 80 MG, 3X/DAY
     Route: 048
     Dates: start: 20040810, end: 20060407
  2. FUROSEMIDE [Concomitant]
     Indication: PULMONARY HYPERTENSION
     Route: 048
     Dates: start: 20031202
  3. SPIRONOLACTONE [Concomitant]
     Indication: PULMONARY HYPERTENSION
     Route: 048
     Dates: start: 20031202
  4. FLUINDIONE [Concomitant]
     Indication: PULMONARY HYPERTENSION
     Route: 048
     Dates: start: 20020218
  5. POTASSIUM CHLORIDE [Concomitant]
     Indication: PULMONARY HYPERTENSION
     Route: 048
     Dates: start: 20031202
  6. LOPERAMIDE HCL [Concomitant]
     Indication: PULMONARY HYPERTENSION
     Route: 048
     Dates: start: 20050201
  7. OMEPRAZOLE [Concomitant]
     Indication: PULMONARY HYPERTENSION
     Route: 048
     Dates: start: 20040401
  8. OXYGEN [Concomitant]
     Indication: PULMONARY HYPERTENSION
     Route: 055
     Dates: start: 20031202
  9. FLOLAN [Concomitant]
     Indication: PULMONARY HYPERTENSION
     Route: 042
     Dates: start: 20021013

REACTIONS (2)
  - CARDIAC ARREST [None]
  - CONVULSION [None]
